FAERS Safety Report 16225095 (Version 1)
Quarter: 2019Q2

REPORT INFORMATION
  Report Type: Spontaneous
  Country: FR (occurrence: FR)
  Receive Date: 20190422
  Receipt Date: 20190422
  Transmission Date: 20190711
  Serious: Yes (Hospitalization)
  Sender: FDA-Public Use
  Company Number: FR-MYLANLABS-2019M1037437

PATIENT
  Age: 86 Year
  Sex: Female

DRUGS (5)
  1. OPTIRAY [Suspect]
     Active Substance: IOVERSOL
     Indication: ANGIOCARDIOGRAM
     Dosage: 200 MILLILITER, QD
     Route: 041
     Dates: start: 20181008, end: 20181008
  2. MIDAZOLAM [Suspect]
     Active Substance: MIDAZOLAM HYDROCHLORIDE
     Indication: PREMEDICATION
     Dosage: NON PR?CIS?E
     Route: 041
     Dates: start: 20181008, end: 20181008
  3. PERSANTINE [Suspect]
     Active Substance: DIPYRIDAMOLE
     Indication: CARDIOVASCULAR FUNCTION TEST
     Dosage: NON PR?CIS?E (MILLIGRAM PER MILLILITRE)
     Route: 041
     Dates: start: 20181008, end: 20181008
  4. LIDOCAINE. [Suspect]
     Active Substance: LIDOCAINE
     Indication: INFILTRATION ANAESTHESIA
     Dosage: NON PR?CIS?E
     Route: 014
     Dates: start: 20181008, end: 20181008
  5. HEPARINE SODIQUE [Suspect]
     Active Substance: HEPARIN SODIUM
     Indication: ANTICOAGULANT THERAPY
     Dosage: NON PR?CIS?E
     Route: 041
     Dates: start: 20181008, end: 20181008

REACTIONS (1)
  - Toxic skin eruption [Recovering/Resolving]

NARRATIVE: CASE EVENT DATE: 20181015
